FAERS Safety Report 4299054-5 (Version None)
Quarter: 2004Q1

REPORT INFORMATION
  Report Type: 
  Country: None (occurrence: None)
  Receive Date: 20040217
  Receipt Date: 20040210
  Transmission Date: 20041129
  Serious: Yes (Hospitalization)
  Sender: FDA-Public Use
  Company Number: 200410056BYL

PATIENT
  Sex: Male

DRUGS (5)
  1. ADALAT [Suspect]
     Indication: HYPERTENSION
     Dosage: 40 MG, QD ORAL
     Route: 048
     Dates: start: 20020101, end: 20040206
  2. YOKUKAN SAN [Suspect]
     Indication: INSOMNIA
     Dosage: 5 G QD ORAL
     Route: 048
     Dates: start: 20020101, end: 20040126
  3. MAINTATE [Concomitant]
  4. ROHYPNOL [Concomitant]
  5. ZANTAC [Concomitant]

REACTIONS (3)
  - CONDITION AGGRAVATED [None]
  - INTERSTITIAL LUNG DISEASE [None]
  - LYMPHOCYTE STIMULATION TEST POSITIVE [None]
